FAERS Safety Report 6268594-1 (Version None)
Quarter: 2009Q3

REPORT INFORMATION
  Report Type: 
  Country: None (occurrence: None)
  Receive Date: 20090715
  Receipt Date: 20090702
  Transmission Date: 20100115
  Serious: Yes (Hospitalization)
  Sender: FDA-Public Use
  Company Number: FR-JNJFOC-20090700763

PATIENT
  Age: 74 Year
  Sex: Male

DRUGS (6)
  1. OFLOCET [Suspect]
     Indication: DRUG USE FOR UNKNOWN INDICATION
     Dosage: THERAPY DURATION: 2 WEEKS 6 DAYS
     Route: 042
  2. TAZOCILLINE [Suspect]
     Indication: DRUG USE FOR UNKNOWN INDICATION
     Dosage: THERAPY DURATION: 2 WEEKS 6 DAYS
     Route: 042
  3. PULMICORT-100 [Concomitant]
     Route: 055
  4. TAHOR [Concomitant]
     Route: 048
  5. OMIX [Concomitant]
     Route: 048
  6. KARDEGIC [Concomitant]
     Route: 065

REACTIONS (6)
  - BICYTOPENIA [None]
  - HAEMOPTYSIS [None]
  - HEPATITIS CHOLESTATIC [None]
  - NEUTROPENIA [None]
  - RHABDOMYOLYSIS [None]
  - THROMBOCYTOPENIA [None]
